FAERS Safety Report 11434909 (Version 2)
Quarter: 2015Q3

REPORT INFORMATION
  Report Type: Spontaneous
  Country: JP (occurrence: JP)
  Receive Date: 20150831
  Receipt Date: 20150909
  Transmission Date: 20151125
  Serious: Yes (Hospitalization, Other)
  Sender: FDA-Public Use
  Company Number: JP-BAYER-2015-404903

PATIENT
  Age: 76 Year
  Sex: Female

DRUGS (4)
  1. WARFARIN [Interacting]
     Active Substance: WARFARIN
     Indication: ATRIAL FIBRILLATION
     Route: 048
  2. BAYASPIRIN [Interacting]
     Active Substance: ASPIRIN
     Indication: CEREBRAL INFARCTION
  3. WARFARIN [Interacting]
     Active Substance: WARFARIN
     Indication: CEREBRAL INFARCTION
  4. BAYASPIRIN [Suspect]
     Active Substance: ASPIRIN
     Indication: ATRIAL FIBRILLATION
     Dosage: 100 MG, QD
     Route: 048

REACTIONS (3)
  - Labelled drug-drug interaction medication error [None]
  - Oesophageal haemorrhage [Recovered/Resolved]
  - Haemorrhagic anaemia [None]
